FAERS Safety Report 8027940-9 (Version None)
Quarter: 2012Q1

REPORT INFORMATION
  Report Type: 
  Country: None (occurrence: None)
  Receive Date: 20120106
  Receipt Date: 20120103
  Transmission Date: 20120608
  Serious: No
  Sender: FDA-Public Use
  Company Number: US-B.I. PHARMACEUTICALS,INC./RIDGEFIELD-2012-BP-00160BP

PATIENT
  Sex: Male

DRUGS (10)
  1. LIPITOR [Concomitant]
     Indication: BLOOD CHOLESTEROL INCREASED
     Dosage: 10 MG
     Route: 048
  2. PRADAXA [Suspect]
     Indication: ATRIAL FIBRILLATION
     Dosage: 300 MG
     Route: 048
     Dates: start: 20110701
  3. CARVEDILOL [Concomitant]
     Indication: HYPERTENSION
     Dosage: 50 MG
     Route: 048
  4. DIGOXIN [Concomitant]
     Indication: CARDIOMYOPATHY
     Dosage: 0.25 MG
     Route: 048
  5. SPIRONOLACTONE [Concomitant]
     Indication: OEDEMA
     Dosage: 12.5 MG
     Route: 048
  6. TRILIPIX [Concomitant]
     Indication: SEASONAL ALLERGY
     Dosage: 135 MG
     Route: 048
  7. ASPIRIN [Concomitant]
     Indication: CARDIOMYOPATHY
     Dosage: 81 MG
     Route: 048
  8. CARTIA XT [Concomitant]
     Indication: ATRIAL FIBRILLATION
     Dosage: 240 MG
     Route: 048
  9. ENALAPRIL MALEATE [Concomitant]
     Indication: HYPERTENSION
     Dosage: 10 MG
     Route: 048
  10. FUROSEMIDE [Concomitant]
     Indication: OEDEMA
     Dosage: 20 MG
     Route: 048

REACTIONS (2)
  - BLOOD GLUCOSE INCREASED [None]
  - FLATULENCE [None]
